FAERS Safety Report 7790653-2 (Version None)
Quarter: 2011Q3

REPORT INFORMATION
  Report Type: 
  Country: None (occurrence: None)
  Receive Date: 20110930
  Receipt Date: 20110916
  Transmission Date: 20111222
  Serious: Yes (Other)
  Sender: FDA-Public Use
  Company Number: JP-WATSON-2011-13025

PATIENT
  Age: 1 Day
  Sex: Male

DRUGS (4)
  1. DIAZEPAM [Suspect]
     Indication: CONVULSION NEONATAL
     Dosage: 1 MG, (0.35 MG/KG)
     Route: 042
  2. MIDAZOLAM HCL [Suspect]
     Indication: SEDATION
     Dosage: 0.3 MG, BOLUS (0.1MG/KG)
     Route: 042
  3. MIDAZOLAM HCL [Suspect]
     Dosage: 0.2 MG,  (0.1 MG/KG) X2
  4. MIDAZOLAM HCL [Suspect]
     Dosage: 0.5 MG, ((0.2 MG/KG)
     Route: 042

REACTIONS (2)
  - DYSKINESIA [None]
  - CONDITION AGGRAVATED [None]
